FAERS Safety Report 5147036-3 (Version None)
Quarter: 2006Q4

REPORT INFORMATION
  Report Type: 
  Country: None (occurrence: None)
  Receive Date: 20061103
  Receipt Date: 20061024
  Transmission Date: 20070319
  Serious: Yes (Disabling)
  Sender: FDA-Public Use
  Company Number: 2006131421

PATIENT
  Sex: Female

DRUGS (6)
  1. TOLTERODINE TARTRATE [Suspect]
     Indication: HYPERTONIC BLADDER
     Dosage: ORAL
     Route: 048
     Dates: start: 20060723
  2. ALDACTONE [Concomitant]
  3. ANCORON (AMIODARONE HYDROCHLORIDE) [Concomitant]
  4. ANTAK (RANITIDINE HYDROCHLORIDE) [Concomitant]
  5. IRBESARTAN [Concomitant]
  6. HYDROCHLOROTHIAZIDE [Concomitant]

REACTIONS (3)
  - ABASIA [None]
  - FALL [None]
  - IMMOBILE [None]
